FAERS Safety Report 10599635 (Version 2)
Quarter: 2014Q4

REPORT INFORMATION
  Report Type: Spontaneous
  Country: US (occurrence: US)
  Receive Date: 20141121
  Receipt Date: 20141222
  Transmission Date: 20150529
  Serious: No
  Sender: FDA-Public Use
  Company Number: US-009507513-1411USA009464

PATIENT
  Age: 81 Year
  Sex: Female

DRUGS (1)
  1. MIRALAX [Suspect]
     Active Substance: POLYETHYLENE GLYCOL 3350
     Indication: IRRITABLE BOWEL SYNDROME
     Dosage: UNK, UNKNOWN
     Route: 048
     Dates: start: 201411

REACTIONS (4)
  - Drug ineffective [Unknown]
  - Off label use [Unknown]
  - Drug prescribing error [Unknown]
  - Expired product administered [Unknown]

NARRATIVE: CASE EVENT DATE: 201411
